FAERS Safety Report 9395783 (Version 1)
Quarter: 2013Q3

REPORT INFORMATION
  Report Type: Spontaneous
  Country: GR (occurrence: GR)
  Receive Date: 20130711
  Receipt Date: 20130711
  Transmission Date: 20140515
  Serious: Yes (Death)
  Sender: FDA-Public Use
  Company Number: GR-CUBIST PHARMACEUTICAL, INC.-2012S1000818

PATIENT
  Age: 62 Year
  Sex: Male
  Weight: 85 kg

DRUGS (4)
  1. CUBICIN [Suspect]
     Indication: SEPSIS
     Dosage: 6 MG/KG, Q24H
     Route: 042
     Dates: start: 20120705
  2. CUBICIN [Suspect]
     Indication: OFF LABEL USE
  3. MAXIPIME [Concomitant]
     Indication: PRODUCT USED FOR UNKNOWN INDICATION
     Dosage: UNK UNK, UNK
     Route: 065
     Dates: start: 20120705
  4. CIPROFLOXACIN [Concomitant]
     Indication: PRODUCT USED FOR UNKNOWN INDICATION
     Dosage: UNK UNK, UNK
     Route: 065
     Dates: start: 20120705

REACTIONS (3)
  - Multi-organ failure [Fatal]
  - Septic shock [Fatal]
  - Sepsis [Fatal]
